FAERS Safety Report 10615692 (Version 1)
Quarter: 2014Q4

REPORT INFORMATION
  Report Type: Spontaneous
  Country: US (occurrence: US)
  Receive Date: 20141201
  Receipt Date: 20141201
  Transmission Date: 20150529
  Serious: No
  Sender: FDA-Public Use
  Company Number: US-BAUSCH-SYM-2014-18614

PATIENT
  Age: 44 Year
  Sex: Female
  Weight: 61.22 kg

DRUGS (1)
  1. BENZOYL PEROXIDE PLUS ERYTHROMYCIN RX 3M1 [Suspect]
     Active Substance: BENZOYL PEROXIDE\ERYTHROMYCIN
     Indication: ACNE
     Route: 061
     Dates: start: 20140220, end: 20140220

REACTIONS (3)
  - Eye pruritus [Recovered/Resolved]
  - Eye irritation [Recovered/Resolved]
  - Ocular hyperaemia [Recovered/Resolved]

NARRATIVE: CASE EVENT DATE: 20140220
